FAERS Safety Report 8764155 (Version 1)
Quarter: 2012Q4

REPORT INFORMATION
  Report Type: 
  Country: US (occurrence: US)
  Receive Date: 20120831
  Receipt Date: 20120831
  Transmission Date: 20130627
  Serious: No
  Sender: FDA-Public Use
  Company Number: US-BAYER-2012-089069

PATIENT
  Age: 67 Year
  Sex: Female
  Weight: 77.55 kg

DRUGS (7)
  1. ALEVE CAPLET/TABLET,MIDOL EXTENDED RELIEF CAPLET [Suspect]
     Dosage: 4 DF, PRN
     Route: 048
     Dates: start: 1994, end: 20120809
  2. TYLENOL [Concomitant]
  3. 81MG CHEWABLE WALMART ASPIRIN [Concomitant]
  4. LEVOXYL [Concomitant]
  5. DIOVAN [Concomitant]
  6. VITAMIN B [Concomitant]
  7. BLOOD PRESSURE MEDICATION (NOS) [Concomitant]

REACTIONS (1)
  - Oedema peripheral [Not Recovered/Not Resolved]
